FAERS Safety Report 7098185-4 (Version None)
Quarter: 2010Q4

REPORT INFORMATION
  Report Type: 
  Country: None (occurrence: None)
  Receive Date: 20101112
  Receipt Date: 20101108
  Transmission Date: 20110411
  Serious: Yes (Hospitalization)
  Sender: FDA-Public Use
  Company Number: IT-BRISTOL-MYERS SQUIBB COMPANY-15346349

PATIENT
  Age: 60 Year
  Sex: Male

DRUGS (1)
  1. KARVEZIDE TABS 150MG/12.5MG [Suspect]
     Indication: HYPERTENSION
     Dosage: 1 DF= 15OMG+12 MG ORAL TABS, AT THE DOSAGE OF 1 POSOLOGIC UNIT/DAY,
     Route: 048
     Dates: start: 20000220, end: 20101011

REACTIONS (1)
  - COLD TYPE HAEMOLYTIC ANAEMIA [None]
